FAERS Safety Report 4733732-6 (Version None)
Quarter: 2005Q3

REPORT INFORMATION
  Report Type: 
  Country: None (occurrence: None)
  Receive Date: 20050729
  Receipt Date: 20050712
  Transmission Date: 20060218
  Serious: Yes (Other)
  Sender: FDA-Public Use
  Company Number: 2005-BP-12011RO

PATIENT
  Age: 22 Year
  Sex: Female

DRUGS (3)
  1. METHOTREXATE [Suspect]
     Indication: BONE SARCOMA
     Dosage: IV
     Route: 042
  2. DOXORUBICIN HCL [Suspect]
     Indication: BONE SARCOMA
  3. IFOSFOMIDE (IFOSFAMIDE) [Suspect]
     Indication: BONE SARCOMA

REACTIONS (5)
  - OEDEMA PERIPHERAL [None]
  - PAIN OF SKIN [None]
  - PALMAR ERYTHEMA [None]
  - PLANTAR ERYTHEMA [None]
  - SKIN EXFOLIATION [None]
